FAERS Safety Report 14033624 (Version 5)
Quarter: 2017Q4

REPORT INFORMATION
  Report Type: Spontaneous
  Country: JP (occurrence: JP)
  Receive Date: 20171003
  Receipt Date: 20171214
  Transmission Date: 20180321
  Serious: Yes (Hospitalization)
  Sender: FDA-Public Use
  Company Number: JP-AMGEN-JPNSP2017149463

PATIENT
  Age: 65 Year
  Sex: Female

DRUGS (10)
  1. EPIRUBICIN HYDROCHLORIDE. [Concomitant]
     Active Substance: EPIRUBICIN HYDROCHLORIDE
     Dosage: 71 MG/M2, UNK
     Route: 041
  2. EPIRUBICIN HYDROCHLORIDE. [Concomitant]
     Active Substance: EPIRUBICIN HYDROCHLORIDE
     Dosage: 71 MG/M2, UNK
     Route: 041
  3. CYCLOPHOSPHAMIDE. [Concomitant]
     Active Substance: CYCLOPHOSPHAMIDE
     Dosage: 480 MG/M2, UNK
     Route: 041
  4. G-LASTA [Suspect]
     Active Substance: PEGFILGRASTIM
     Indication: PRODUCT USED FOR UNKNOWN INDICATION
     Dosage: UNK
     Route: 058
     Dates: start: 20170915
  5. CYCLOPHOSPHAMIDE. [Concomitant]
     Active Substance: CYCLOPHOSPHAMIDE
     Dosage: 480 MG/M2, UNK
     Route: 041
  6. CYCLOPHOSPHAMIDE. [Concomitant]
     Active Substance: CYCLOPHOSPHAMIDE
     Dosage: 480 MG/M2, UNK
     Route: 041
     Dates: start: 20170914
  7. CYCLOPHOSPHAMIDE. [Concomitant]
     Active Substance: CYCLOPHOSPHAMIDE
     Dosage: 480 MG/M2, UNK
     Route: 041
  8. CYCLOPHOSPHAMIDE. [Concomitant]
     Active Substance: CYCLOPHOSPHAMIDE
     Dosage: 480 MG/M2, UNK
     Route: 041
     Dates: start: 20170914
  9. CYCLOPHOSPHAMIDE. [Concomitant]
     Active Substance: CYCLOPHOSPHAMIDE
     Dosage: 480 MG/M2, UNK
     Route: 041
  10. EPIRUBICIN HYDROCHLORIDE. [Concomitant]
     Active Substance: EPIRUBICIN HYDROCHLORIDE
     Dosage: 71 MG/M2, UNK
     Route: 041
     Dates: start: 20170914

REACTIONS (1)
  - Febrile neutropenia [Recovered/Resolved]

NARRATIVE: CASE EVENT DATE: 20170915
